FAERS Safety Report 10967877 (Version 1)
Quarter: 2015Q1

REPORT INFORMATION
  Report Type: Spontaneous
  Country: DK (occurrence: DK)
  Receive Date: 20150330
  Receipt Date: 20150330
  Transmission Date: 20150721
  Serious: Yes (Hospitalization)
  Sender: FDA-Public Use
  Company Number: DK-GLAXOSMITHKLINE-B0942651A

PATIENT
  Age: 68 Year
  Sex: Female

DRUGS (9)
  1. VENTOLINE [Concomitant]
     Active Substance: ALBUTEROL
     Dosage: 0,2 MG PN
     Route: 055
  2. SIMVASTATIN. [Concomitant]
     Active Substance: SIMVASTATIN
     Dosage: 40 MG, QD
     Route: 048
  3. COMBAR [Concomitant]
     Dosage: 30 MG, QD
     Route: 048
  4. CLOPIDOGREL [Concomitant]
     Active Substance: CLOPIDOGREL BISULFATE
     Dosage: 75 MG, QD
     Route: 048
  5. AMLODIPIN [Concomitant]
     Active Substance: AMLODIPINE BESYLATE
     Dosage: 10 MG, QD
     Route: 048
  6. SPIRIVA [Concomitant]
     Active Substance: TIOTROPIUM BROMIDE MONOHYDRATE
     Dosage: 18 ?G, QD
     Route: 055
  7. FORTAMOL [Concomitant]
     Route: 048
  8. SERETIDE [Suspect]
     Active Substance: FLUTICASONE FUROATE\SALMETEROL XINAFOATE
     Indication: ASTHMA
     Dosage: DOSIS: 50+500 MIKROGRAM
     Route: 055
     Dates: start: 20130423
  9. PINEX [Concomitant]
     Active Substance: ACETAMINOPHEN
     Dosage: 1000 MG, QID
     Route: 048

REACTIONS (1)
  - Hypokalaemia [Recovered/Resolved]

NARRATIVE: CASE EVENT DATE: 20131021
